FAERS Safety Report 9322221 (Version 1)
Quarter: 2013Q2

REPORT INFORMATION
  Report Type: Report from Study
  Country: US (occurrence: US)
  Receive Date: 20130531
  Receipt Date: 20130531
  Transmission Date: 20140414
  Serious: Yes (Hospitalization)
  Sender: FDA-Public Use
  Company Number: US-JNJFOC-20120700282

PATIENT
  Sex: Male

DRUGS (1)
  1. STELARA [Suspect]
     Indication: PUSTULAR PSORIASIS
     Route: 058

REACTIONS (3)
  - Pustular psoriasis [Unknown]
  - Psoriatic arthropathy [Unknown]
  - Drug ineffective [Unknown]
